FAERS Safety Report 16261042 (Version 1)
Quarter: 2019Q2

REPORT INFORMATION
  Report Type: Report from Study
  Country: IT (occurrence: IT)
  Receive Date: 20190501
  Receipt Date: 20190501
  Transmission Date: 20190711
  Serious: Yes (Other)
  Sender: FDA-Public Use
  Company Number: IT-TEVA-2019-IT-1043462

PATIENT
  Age: 71 Year
  Sex: Female

DRUGS (1)
  1. ALPRAZOLAM. [Suspect]
     Active Substance: ALPRAZOLAM
     Indication: INSOMNIA
     Route: 048
     Dates: start: 20190410, end: 20190410

REACTIONS (3)
  - Loss of consciousness [Recovering/Resolving]
  - Sopor [Recovering/Resolving]
  - Accidental overdose [Recovering/Resolving]

NARRATIVE: CASE EVENT DATE: 20190410
